FAERS Safety Report 19060991 (Version 2)
Quarter: 2021Q2

REPORT INFORMATION
  Report Type: Spontaneous
  Country: GB (occurrence: GB)
  Receive Date: 20210325
  Receipt Date: 20210417
  Transmission Date: 20210717
  Serious: Yes (Life-Threatening, Hospitalization, Disabling, Other)
  Sender: FDA-Public Use
  Company Number: GB-DEXPHARM-20210358

PATIENT
  Age: 49 Year
  Sex: Male

DRUGS (8)
  1. ATORVASTATIN [Interacting]
     Active Substance: ATORVASTATIN
  2. PARACETAMOL [Interacting]
     Active Substance: ACETAMINOPHEN
  3. ASPIRIN. [Suspect]
     Active Substance: ASPIRIN
  4. IBUPROFEN. [Interacting]
     Active Substance: IBUPROFEN
  5. TRAMADOL. [Interacting]
     Active Substance: TRAMADOL
  6. LISINOPRIL. [Interacting]
     Active Substance: LISINOPRIL
  7. OMEPRAZOLE. [Interacting]
     Active Substance: OMEPRAZOLE
  8. BISOPROLOL [Interacting]
     Active Substance: BISOPROLOL

REACTIONS (5)
  - Drug interaction [Unknown]
  - Renal failure [Unknown]
  - Liver injury [Unknown]
  - Syncope [Unknown]
  - Acute kidney injury [Unknown]
